FAERS Safety Report 12714018 (Version 1)
Quarter: 2016Q3

REPORT INFORMATION
  Report Type: Spontaneous
  Country: NO (occurrence: NO)
  Receive Date: 20160905
  Receipt Date: 20160905
  Transmission Date: 20161109
  Serious: Yes (Death, Hospitalization, Other)
  Sender: FDA-Public Use
  Company Number: NO-PFIZER INC-2016401539

PATIENT
  Age: 75 Year
  Sex: Female

DRUGS (2)
  1. SUTENT [Suspect]
     Active Substance: SUNITINIB MALATE
     Indication: RENAL CANCER
     Dosage: CYCLIC ADMINISTRATION: 2 WEEKS WITH TREATMENT, 1 WEEK WITHOUT TREATMENT
     Route: 048
     Dates: start: 20160630
  2. ALBYL-E [Concomitant]
     Active Substance: ASPIRIN\MAGNESIUM OXIDE
     Dosage: 75 MG
     Route: 048
     Dates: start: 20160630

REACTIONS (2)
  - Haemorrhage intracranial [Fatal]
  - Platelet count decreased [Unknown]

NARRATIVE: CASE EVENT DATE: 20160801
